FAERS Safety Report 4582351-3 (Version None)
Quarter: 2005Q1

REPORT INFORMATION
  Report Type: 
  Country: None (occurrence: None)
  Receive Date: 20050118
  Receipt Date: 20040901
  Transmission Date: 20050727
  Serious: Yes (Other)
  Sender: FDA-Public Use
  Company Number: 379604

PATIENT
  Age: 19 Year
  Sex: Male

DRUGS (4)
  1. ROCEPHIN [Suspect]
     Indication: SUBDURAL HAEMATOMA
     Dosage: 2 GRAM DAILY INTRAVENOUS
     Route: 042
     Dates: start: 20040727, end: 20040827
  2. CLINDAMYCIN (CLINDAMYCIN) [Concomitant]
  3. TRAZODONE (TRAZODONE HYDROCHLORIDE) [Concomitant]
  4. DILANTIN [Concomitant]

REACTIONS (2)
  - NEUTROPENIA [None]
  - WHITE BLOOD CELL COUNT DECREASED [None]
